FAERS Safety Report 25351673 (Version 1)
Quarter: 2025Q2

REPORT INFORMATION
  Report Type: Spontaneous
  Country: IT (occurrence: IT)
  Receive Date: 20250523
  Receipt Date: 20250523
  Transmission Date: 20250717
  Serious: Yes (Other)
  Sender: BRACCO
  Company Number: None

PATIENT
  Sex: Male

DRUGS (1)
  1. IOMERON [Interacting]
     Active Substance: IOMEPROL
     Indication: Computerised tomogram

REACTIONS (1)
  - Choking [Recovered/Resolved]

NARRATIVE: CASE EVENT DATE: 20250430
